FAERS Safety Report 4935289-3 (Version None)
Quarter: 2006Q1

REPORT INFORMATION
  Report Type: 
  Country: None (occurrence: None)
  Receive Date: 20060302
  Receipt Date: 20060213
  Transmission Date: 20060701
  Serious: Yes (Other)
  Sender: FDA-Public Use
  Company Number: US200601000628

PATIENT
  Age: 30 Year
  Sex: Male

DRUGS (1)
  1. ZYPREXA [Suspect]
     Indication: SCHIZOPHRENIA
     Dosage: 20 MG, EACH EVENING, ORAL
     Route: 048
     Dates: start: 19970101, end: 20050101

REACTIONS (5)
  - EPILEPSY [None]
  - HEADACHE [None]
  - INSOMNIA [None]
  - SPEECH DISORDER [None]
  - WEIGHT INCREASED [None]
